FAERS Safety Report 5481321-0 (Version None)
Quarter: 2007Q4

REPORT INFORMATION
  Report Type: 
  Country: None (occurrence: None)
  Receive Date: 20071005
  Receipt Date: 20071005
  Transmission Date: 20080405
  Serious: Yes (Death)
  Sender: FDA-Public Use
  Company Number: None

PATIENT
  Sex: Male
  Weight: 108 kg

DRUGS (3)
  1. FLUOROURACIL [Suspect]
     Indication: TONGUE NEOPLASM MALIGNANT STAGE UNSPECIFIED
     Dosage: 600MG/M2 IV QD
     Route: 042
     Dates: start: 20070916, end: 20070921
  2. HYDREA [Suspect]
     Indication: TONGUE NEOPLASM MALIGNANT STAGE UNSPECIFIED
     Dosage: 500MG PO BID
     Route: 048
     Dates: start: 20070916, end: 20070921
  3. CEXTUXIMAB 250 MG/M2 IV QW [Suspect]
     Indication: TONGUE NEOPLASM MALIGNANT STAGE UNSPECIFIED
     Dosage: 250 MG/M2 IV QW
     Route: 042
     Dates: start: 20070917

REACTIONS (5)
  - CATHETER SITE INFECTION [None]
  - ENDOTRACHEAL INTUBATION COMPLICATION [None]
  - OXYGEN SATURATION DECREASED [None]
  - SEPSIS [None]
  - STAPHYLOCOCCAL INFECTION [None]
